FAERS Safety Report 18821391 (Version 3)
Quarter: 2021Q1

REPORT INFORMATION
  Report Type: Spontaneous
  Country: FR (occurrence: FR)
  Receive Date: 20210201
  Receipt Date: 20210304
  Transmission Date: 20210419
  Serious: Yes (Hospitalization, Other)
  Sender: FDA-Public Use
  Company Number: FR-PFIZER INC-2021069261

PATIENT
  Age: 19 Year
  Sex: Male

DRUGS (3)
  1. XANAX [Suspect]
     Active Substance: ALPRAZOLAM
     Dosage: ONE COMPLETE BLISTER PACK
     Route: 048
  2. SKENAN [Interacting]
     Active Substance: MORPHINE SULFATE
     Dosage: 50 MG, 1X/DAY (SELF?INJECTION OF 50 MG INTRAVENOUSLY)
     Route: 042
  3. SKENAN [Interacting]
     Active Substance: MORPHINE SULFATE
     Dosage: 125 MG, 1X/DAY (SELF?INJECTION)
     Route: 042
     Dates: start: 202101

REACTIONS (12)
  - Drug dependence [Unknown]
  - Injection site pain [Unknown]
  - Potentiating drug interaction [Unknown]
  - Overdose [Unknown]
  - Injection site swelling [Unknown]
  - Drug tolerance [Unknown]
  - Drug abuse [Unknown]
  - Drug diversion [Unknown]
  - Urticaria [Unknown]
  - Disease progression [Unknown]
  - Venous injury [Unknown]
  - Intentional product use issue [Unknown]

NARRATIVE: CASE EVENT DATE: 20201231
